FAERS Safety Report 16798622 (Version 1)
Quarter: 2019Q4

REPORT INFORMATION
  Report Type: Spontaneous
  Country: US (occurrence: US)
  Receive Date: 20190911
  Receipt Date: 20190911
  Transmission Date: 20200122
  Serious: Yes (Hospitalization)
  Sender: FDA-Public Use
  Company Number: None

PATIENT
  Age: 43 Year
  Sex: Female

DRUGS (14)
  1. PREDNISONE. [Concomitant]
     Active Substance: PREDNISONE
  2. CLONIDINE. [Concomitant]
     Active Substance: CLONIDINE
  3. NITROFURANTIN [Concomitant]
     Active Substance: NITROFURANTOIN
  4. AMLODIPINE [Concomitant]
     Active Substance: AMLODIPINE BESYLATE
  5. NYSTATIN. [Concomitant]
     Active Substance: NYSTATIN
  6. EPINEPHRINE. [Concomitant]
     Active Substance: EPINEPHRINE
  7. METHOCARBAM [Concomitant]
     Active Substance: METHOCARBAMOL
  8. GABAPENTIN. [Concomitant]
     Active Substance: GABAPENTIN
  9. XOFLUZA [Concomitant]
     Active Substance: BALOXAVIR MARBOXIL
  10. AZITHROMYCIN ANHYDROUS. [Concomitant]
     Active Substance: AZITHROMYCIN ANHYDROUS
  11. ORENCIA [Suspect]
     Active Substance: ABATACEPT
     Indication: RHEUMATOID ARTHRITIS
     Dosage: ?          OTHER FREQUENCY:WEEKLY;?
     Route: 058
     Dates: start: 20190510
  12. FLUCONAZOLE. [Concomitant]
     Active Substance: FLUCONAZOLE
  13. COLCHICINE. [Concomitant]
     Active Substance: COLCHICINE
  14. ONDANSETRON [Concomitant]
     Active Substance: ONDANSETRON

REACTIONS (1)
  - Influenza [None]

NARRATIVE: CASE EVENT DATE: 20190701
